FAERS Safety Report 21265355 (Version 1)
Quarter: 2022Q3

REPORT INFORMATION
  Report Type: Report from Study
  Country: BR (occurrence: BR)
  Receive Date: 20220829
  Receipt Date: 20220829
  Transmission Date: 20221027
  Serious: Yes (Hospitalization)
  Sender: FDA-Public Use
  Company Number: BR-JNJFOC-20220850827

PATIENT
  Sex: Male
  Weight: 68 kg

DRUGS (1)
  1. INFLIXIMAB [Suspect]
     Active Substance: INFLIXIMAB
     Indication: Psoriasis
     Route: 041
     Dates: start: 2009, end: 2009

REACTIONS (3)
  - Adverse event [Recovered/Resolved]
  - Oropharyngeal blistering [Recovered/Resolved]
  - Blister [Recovered/Resolved]
